FAERS Safety Report 16703081 (Version 4)
Quarter: 2020Q2

REPORT INFORMATION
  Report Type: Spontaneous
  Country: US (occurrence: US)
  Receive Date: 20190814
  Receipt Date: 20200511
  Transmission Date: 20200713
  Serious: Yes (Hospitalization, Other)
  Sender: FDA-Public Use
  Company Number: US-PFIZER INC-2019345487

PATIENT
  Age: 76 Year
  Sex: Male
  Weight: 108 kg

DRUGS (5)
  1. LYRICA [Suspect]
     Active Substance: PREGABALIN
     Dosage: 100 MG, (100 MG, ONE CAPSULE AT NOON)
     Route: 048
  2. LYRICA [Suspect]
     Active Substance: PREGABALIN
     Dosage: UNK ^LESSER DOSE^
  3. LYRICA [Suspect]
     Active Substance: PREGABALIN
     Dosage: 150 MG, DAILY(50 MG. ONE CAPSULE IN THE EVENING WITH A 100 MG CAPSULE TO EQUAL 150 MG)
  4. LYRICA [Suspect]
     Active Substance: PREGABALIN
     Dosage: 450 MG, DAILY (200 MG IN MORNING, 100 MG AT NOON, AND 100 MG PLUS A 50 MG AT NIGHT)
  5. LYRICA [Suspect]
     Active Substance: PREGABALIN
     Indication: NEUROPATHY PERIPHERAL
     Dosage: 200 MG, 1X/DAY(200 MG. ONCE IN THE MORNING BY MOUTH)
     Route: 048

REACTIONS (3)
  - Blindness [Unknown]
  - Body height decreased [Unknown]
  - Staphylococcal infection [Recovered/Resolved]

NARRATIVE: CASE EVENT DATE: 20190728
